FAERS Safety Report 13418488 (Version 1)
Quarter: 2017Q2

REPORT INFORMATION
  Report Type: Spontaneous
  Country: US (occurrence: US)
  Receive Date: 20170408
  Receipt Date: 20170408
  Transmission Date: 20170830
  Serious: Yes (Other)
  Sender: FDA-Public Use
  Company Number: US-ABBVIE-17K-163-1929993-00

PATIENT
  Sex: Female

DRUGS (2)
  1. HUMIRA [Suspect]
     Active Substance: ADALIMUMAB
     Route: 063
  2. HUMIRA [Suspect]
     Active Substance: ADALIMUMAB
     Indication: MATERNAL EXPOSURE TIMING UNSPECIFIED
     Route: 064

REACTIONS (10)
  - Foetal malposition [Unknown]
  - Foetal exposure during pregnancy [Unknown]
  - Haematoma [Recovered/Resolved]
  - Blood bilirubin increased [Recovered/Resolved]
  - Facial asymmetry [Not Recovered/Not Resolved]
  - Craniosynostosis [Not Recovered/Not Resolved]
  - Microtia [Not Recovered/Not Resolved]
  - Anomaly of external ear congenital [Not Recovered/Not Resolved]
  - Jaundice neonatal [Recovered/Resolved]
  - Exposure during breast feeding [Unknown]

NARRATIVE: CASE EVENT DATE: 2016
